FAERS Safety Report 8928720 (Version 1)
Quarter: 2012Q4

REPORT INFORMATION
  Report Type: Report from Study
  Country: US (occurrence: US)
  Receive Date: 20121127
  Receipt Date: 20121127
  Transmission Date: 20130627
  Serious: Yes (Hospitalization)
  Sender: FDA-Public Use
  Company Number: US-BAXTER-2012BAX024785

PATIENT
  Age: 76 Year

DRUGS (5)
  1. CYTOXAN? (CYCLOPHOSPHAMIDE FOR INJECTION, USP) [Suspect]
     Indication: CLL
     Route: 065
  2. RITUXIMAB [Suspect]
     Indication: CLL
     Route: 065
  3. DOXORUBICIN [Suspect]
     Indication: CLL
     Route: 065
  4. VINCRISTINE SULFATE [Suspect]
     Indication: CLL
     Route: 065
  5. PREDNISONE [Suspect]
     Indication: CLL
     Route: 065

REACTIONS (1)
  - Deep vein thrombosis [Unknown]
